FAERS Safety Report 7620151-8 (Version None)
Quarter: 2011Q3

REPORT INFORMATION
  Report Type: 
  Country: None (occurrence: None)
  Receive Date: 20110719
  Receipt Date: 20110629
  Transmission Date: 20111222
  Serious: Yes (Hospitalization)
  Sender: FDA-Public Use
  Company Number: AU-AMGEN-AUSCT2011032714

PATIENT
  Age: 31 Year
  Sex: Female

DRUGS (6)
  1. CHOLECALCIFEROL [Concomitant]
     Dosage: 1000 IU, UNK
     Dates: start: 20110322
  2. DENOSUMAB [Suspect]
     Indication: BREAST CANCER
     Dates: start: 20110322
  3. HERCEPTIN [Concomitant]
  4. DOCETAXEL [Concomitant]
  5. ACETAMINOPHEN [Concomitant]
     Dosage: 500 MG, PRN
     Route: 048
     Dates: start: 20110608
  6. CALCIUM CARBONATE [Concomitant]
     Dosage: 600 MG, QD
     Route: 048
     Dates: start: 20110322

REACTIONS (1)
  - FEBRILE NEUTROPENIA [None]
